FAERS Safety Report 6114367-X (Version None)
Quarter: 2009Q1

REPORT INFORMATION
  Report Type: 
  Country: None (occurrence: None)
  Receive Date: 20090313
  Receipt Date: 20090302
  Transmission Date: 20090719
  Serious: Yes (Other)
  Sender: FDA-Public Use
  Company Number: TW-RANBAXY-2009RR-22317

PATIENT
  Age: 33 Month
  Sex: Female

DRUGS (2)
  1. AMLODIPINE [Suspect]
     Indication: HYPERTENSION
     Dosage: UNK
     Dates: start: 20060522
  2. DEXTROSE DYALISATE [Concomitant]

REACTIONS (8)
  - BODY TEMPERATURE [None]
  - DRUG EFFECT DECREASED [None]
  - HAEMODIALYSIS [None]
  - LEUKOCYTOSIS [None]
  - LYMPHOCYTOSIS [None]
  - MITRAL VALVE INCOMPETENCE [None]
  - PERICARDIAL EFFUSION [None]
  - RESPIRATORY RATE INCREASED [None]
